FAERS Safety Report 23137450 (Version 1)
Quarter: 2023Q4

REPORT INFORMATION
  Report Type: Spontaneous
  Country: US (occurrence: US)
  Receive Date: 20231102
  Receipt Date: 20231102
  Transmission Date: 20240109
  Serious: Yes (Other)
  Sender: FDA-Public Use
  Company Number: US-PURDUE PHARMA-USA-2023-0303147

PATIENT
  Sex: Female

DRUGS (5)
  1. OXYCONTIN [Suspect]
     Active Substance: OXYCODONE HYDROCHLORIDE
     Indication: Illness
     Dosage: UNKNOWN
     Route: 048
     Dates: start: 2004
  2. OXYCODONE HYDROCHLORIDE [Suspect]
     Active Substance: OXYCODONE HYDROCHLORIDE
     Indication: Illness
     Dosage: UNKNOWN
     Route: 048
     Dates: start: 2004
  3. OXYCODONE HYDROCHLORIDE [Suspect]
     Active Substance: OXYCODONE HYDROCHLORIDE
     Indication: Illness
     Dosage: UNKNOWN
     Route: 048
     Dates: start: 2004
  4. ACETAMINOPHEN\OXYCODONE HYDROCHLORIDE [Suspect]
     Active Substance: ACETAMINOPHEN\OXYCODONE HYDROCHLORIDE
     Indication: Illness
     Dosage: UNKNOWN
     Route: 048
     Dates: start: 2004
  5. TRAMADOL [Suspect]
     Active Substance: TRAMADOL\TRAMADOL HYDROCHLORIDE
     Indication: Illness
     Dosage: UNKNOWN
     Route: 048
     Dates: start: 2004

REACTIONS (2)
  - Overdose [Unknown]
  - Drug dependence [Unknown]
